FAERS Safety Report 8821813 (Version 1)
Quarter: 2012Q4

REPORT INFORMATION
  Report Type: 
  Country: US (occurrence: US)
  Receive Date: 20121002
  Receipt Date: 20121002
  Transmission Date: 20130627
  Serious: No
  Sender: FDA-Public Use
  Company Number: US-VERTEX PHARMACEUTICAL INC.-2012-020713

PATIENT
  Age: 58 Year
  Sex: Male

DRUGS (3)
  1. INCIVEK [Suspect]
     Indication: HEPATITIS C
     Dosage: 750 mg, tid
     Route: 048
     Dates: start: 20120808
  2. RIBAVIRIN [Concomitant]
     Indication: HEPATITIS C
     Dosage: UNK, bid
     Route: 048
     Dates: start: 20120808
  3. PEGASYS [Concomitant]
     Indication: HEPATITIS C
     Dosage: UNK
     Route: 058
     Dates: start: 20120808

REACTIONS (6)
  - Eating disorder [Not Recovered/Not Resolved]
  - Presyncope [Not Recovered/Not Resolved]
  - Frequent bowel movements [Not Recovered/Not Resolved]
  - Haemorrhoids [Not Recovered/Not Resolved]
  - Anorectal discomfort [Not Recovered/Not Resolved]
  - Rectal haemorrhage [Not Recovered/Not Resolved]
